FAERS Safety Report 25427149 (Version 1)
Quarter: 2025Q2

REPORT INFORMATION
  Report Type: Spontaneous
  Country: US (occurrence: FR)
  Receive Date: 20250612
  Receipt Date: 20250612
  Transmission Date: 20250716
  Serious: Yes (Death, Other)
  Sender: ADVANZ PHARMA
  Company Number: US-ADVANZ PHARMA-202505004253

PATIENT

DRUGS (1)
  1. ZONISAMIDE [Suspect]
     Active Substance: ZONISAMIDE

REACTIONS (1)
  - Drug reaction with eosinophilia and systemic symptoms [Fatal]
